FAERS Safety Report 12853323 (Version 2)
Quarter: 2017Q2

REPORT INFORMATION
  Report Type: Spontaneous
  Country: JP (occurrence: JP)
  Receive Date: 20161017
  Receipt Date: 20170421
  Transmission Date: 20170830
  Serious: Yes (Hospitalization)
  Sender: FDA-Public Use
  Company Number: JP-ELI_LILLY_AND_COMPANY-JP201610004024

PATIENT
  Age: 80 Year
  Sex: Female
  Weight: 48 kg

DRUGS (12)
  1. CELECOX [Concomitant]
     Active Substance: CELECOXIB
     Dosage: 100 MG, BID
     Route: 048
     Dates: start: 20160106
  2. LYRICA [Concomitant]
     Active Substance: PREGABALIN
     Dosage: 75 MG, BID
     Route: 048
     Dates: start: 201601
  3. JANUVIA [Concomitant]
     Active Substance: SITAGLIPTIN PHOSPHATE
     Dosage: 50 MG, QD
     Route: 048
  4. EDIROL [Concomitant]
     Active Substance: ELDECALCITOL
     Dosage: 0.75 UG, QD
     Route: 048
     Dates: start: 20131112
  5. AMLODIPINE [Concomitant]
     Active Substance: AMLODIPINE BESYLATE
     Dosage: 5 MG, QD
     Route: 048
  6. TAKECAB [Concomitant]
     Active Substance: VONOPRAZAN FUMURATE
     Dosage: 20 MG, QD
     Route: 048
     Dates: start: 201604
  7. FORTEO [Suspect]
     Active Substance: TERIPARATIDE
     Indication: OSTEOPOROSIS
     Dosage: 20 UG, QD
     Route: 058
     Dates: start: 20160922, end: 20161005
  8. MICARDIS [Concomitant]
     Active Substance: TELMISARTAN
     Dosage: 20 MG, QD
     Route: 048
  9. CALCIUM ASPARTATE [Concomitant]
     Active Substance: CALCIUM ASPARTATE
     Dosage: 400 MG, TID
     Route: 048
     Dates: start: 20160921
  10. BEZAFIBRATE [Concomitant]
     Active Substance: BEZAFIBRATE
     Dosage: 200 MG, BID
     Route: 048
  11. FUROSEMIDE. [Concomitant]
     Active Substance: FUROSEMIDE
     Dosage: 40 MG, QD
     Route: 048
  12. VESICARE [Concomitant]
     Active Substance: SOLIFENACIN SUCCINATE
     Dosage: 2.5 MG, BID
     Route: 048

REACTIONS (1)
  - Renal impairment [Recovered/Resolved]

NARRATIVE: CASE EVENT DATE: 20161005
